FAERS Safety Report 7107962-2 (Version None)
Quarter: 2010Q4

REPORT INFORMATION
  Report Type: 
  Country: None (occurrence: None)
  Receive Date: 20101117
  Receipt Date: 20101111
  Transmission Date: 20110411
  Serious: Yes (Death)
  Sender: FDA-Public Use
  Company Number: CN-GENZYME-FLUD-1000375

PATIENT
  Sex: Female
  Weight: 46 kg

DRUGS (3)
  1. FLUDARA [Suspect]
     Indication: ACUTE MYELOID LEUKAEMIA
     Dosage: 30 MG/M2, QD
     Route: 042
     Dates: start: 20100518, end: 20100523
  2. ARA-C [Suspect]
     Indication: ACUTE MYELOID LEUKAEMIA
     Dosage: 1.5 G/M2, UNK
     Route: 065
     Dates: start: 20100518, end: 20100523
  3. BUSULFAN [Suspect]
     Indication: ACUTE MYELOID LEUKAEMIA
     Dosage: 0.8 MG/M2, UNK
     Route: 065
     Dates: start: 20100523, end: 20100525

REACTIONS (2)
  - INFECTION [None]
  - VENOOCCLUSIVE LIVER DISEASE [None]
